FAERS Safety Report 19272863 (Version 1)
Quarter: 2021Q2

REPORT INFORMATION
  Report Type: Spontaneous
  Country: US (occurrence: US)
  Receive Date: 20210519
  Receipt Date: 20210519
  Transmission Date: 20210717
  Serious: Yes (Other)
  Sender: FDA-Public Use
  Company Number: US-AUROBINDO-AUR-APL-2021-019609

PATIENT
  Age: 70 Year
  Sex: Male

DRUGS (4)
  1. DEXAMETHASONE INJECTION [Suspect]
     Active Substance: DEXAMETHASONE
     Dosage: UNK (SECOND IT STEROID INJECTION)
  2. PREDNISONE. [Suspect]
     Active Substance: PREDNISONE
     Indication: DEAFNESS NEUROSENSORY
     Dosage: UNK (HIGH DOSE)
     Route: 048
  3. PHENOL. [Concomitant]
     Active Substance: PHENOL
     Indication: PRODUCT USED FOR UNKNOWN INDICATION
     Dosage: UNK
     Route: 061
  4. DEXAMETHASONE INJECTION [Suspect]
     Active Substance: DEXAMETHASONE
     Indication: DEAFNESS NEUROSENSORY
     Dosage: UNK (0.5 ML OF 10 MG/ML)

REACTIONS (1)
  - Osteonecrosis [Unknown]
